FAERS Safety Report 6652410-X (Version None)
Quarter: 2010Q1

REPORT INFORMATION
  Report Type: 
  Country: None (occurrence: None)
  Receive Date: 20100323
  Receipt Date: 20100312
  Transmission Date: 20100710
  Serious: Yes (Hospitalization, Other)
  Sender: FDA-Public Use
  Company Number: 2010US000867

PATIENT
  Age: 75 Year
  Sex: Female

DRUGS (23)
  1. LEXISCAN [Suspect]
     Indication: SCAN MYOCARDIAL PERFUSION
     Dosage: 0.4 MG, TOTAL DOSE, IV NOS
     Route: 042
     Dates: start: 20100311, end: 20100311
  2. AMINOPHYLLIN [Suspect]
     Indication: CHEST DISCOMFORT
     Dosage: 75 MG,OTHER
     Dates: start: 20100311, end: 20100311
  3. AMINOPHYLLIN [Suspect]
     Indication: CHEST PAIN
     Dosage: 75 MG,OTHER
     Dates: start: 20100311, end: 20100311
  4. AMINOPHYLLIN [Suspect]
     Indication: DYSPNOEA
     Dosage: 75 MG,OTHER
     Dates: start: 20100311, end: 20100311
  5. AMINOPHYLLIN [Suspect]
     Indication: FLUSHING
     Dosage: 75 MG,OTHER
     Dates: start: 20100311, end: 20100311
  6. AMINOPHYLLIN [Suspect]
     Indication: HEADACHE
     Dosage: 75 MG,OTHER
     Dates: start: 20100311, end: 20100311
  7. AMINOPHYLLIN [Suspect]
     Indication: HYPERSENSITIVITY
     Dosage: 75 MG,OTHER
     Dates: start: 20100311, end: 20100311
  8. AMINOPHYLLIN [Suspect]
     Indication: NAUSEA
     Dosage: 75 MG,OTHER
     Dates: start: 20100311, end: 20100311
  9. AMINOPHYLLIN [Suspect]
     Indication: TREMOR
     Dosage: 75 MG,OTHER
     Dates: start: 20100311, end: 20100311
  10. ASPIRIN [Concomitant]
  11. CALCIUM (CALCIUM) [Concomitant]
  12. DIOVAN [Concomitant]
  13. EVISTA [Concomitant]
  14. GLUCOSAMINE + CHONDROITIN (CHONDROITIN, GLUCOSAMINE) [Concomitant]
  15. NEFAZODONE HCL [Concomitant]
  16. NEXIUM [Concomitant]
  17. OMEGA-3 (OMEGA-3 TRIGLYCERIDES) [Concomitant]
  18. SYNTHROID [Concomitant]
  19. VITAMIN D NOS (VITAMIN D NOS) [Concomitant]
  20. ZETIA [Concomitant]
  21. ZICAM (PIROXICAM) [Concomitant]
  22. NITROGLYCERIN [Concomitant]
  23. LEVAQUIN (LEVOFOXACIN) [Concomitant]

REACTIONS (8)
  - ANAEMIA [None]
  - CHEST DISCOMFORT [None]
  - CHEST PAIN [None]
  - FLUSHING [None]
  - HEADACHE [None]
  - HYPERSENSITIVITY [None]
  - NAUSEA [None]
  - TREMOR [None]
